FAERS Safety Report 8916558 (Version 2)
Quarter: 2012Q4

REPORT INFORMATION
  Report Type: 
  Country: US (occurrence: US)
  Receive Date: 20121120
  Receipt Date: 20121211
  Transmission Date: 20130627
  Serious: Yes (Hospitalization)
  Sender: FDA-Public Use
  Company Number: US-SANOFI-AVENTIS-2012SA082409

PATIENT
  Age: 60 Year
  Sex: Male
  Weight: 86.36 kg

DRUGS (3)
  1. GLYBURIDE [Suspect]
     Indication: TYPE II DIABETES MELLITUS
     Route: 048
     Dates: end: 2012
  2. ZIAC [Concomitant]
     Indication: BLOOD PRESSURE HIGH
     Dosage: 2.5/6.25
     Dates: start: 2006
  3. LISINOPRIL [Concomitant]
     Indication: BLOOD PRESSURE HIGH

REACTIONS (3)
  - Chest pain [Unknown]
  - Blood pressure increased [Unknown]
  - Gastrointestinal disorder [Unknown]
